FAERS Safety Report 19424016 (Version 1)
Quarter: 2021Q2

REPORT INFORMATION
  Report Type: Spontaneous
  Country: CA (occurrence: CA)
  Receive Date: 20210616
  Receipt Date: 20210616
  Transmission Date: 20210717
  Serious: Yes (Hospitalization, Other)
  Sender: FDA-Public Use
  Company Number: CA-AUROBINDO-AUR-APL-2021-024860

PATIENT
  Age: 91 Year
  Sex: Female
  Weight: 56 kg

DRUGS (1)
  1. PIPERACILLIN+TAZOBACTAM INJECTION [Suspect]
     Active Substance: PIPERACILLIN SODIUM\TAZOBACTAM SODIUM
     Indication: CELLULITIS
     Dosage: 2.25 GRAM, FOUR TIMES/DAY
     Route: 042

REACTIONS (1)
  - Immune thrombocytopenia [Not Recovered/Not Resolved]
